FAERS Safety Report 13598050 (Version 1)
Quarter: 2017Q2

REPORT INFORMATION
  Report Type: Spontaneous
  Country: JP (occurrence: JP)
  Receive Date: 20170531
  Receipt Date: 20170531
  Transmission Date: 20170830
  Serious: Yes (Other)
  Sender: FDA-Public Use
  Company Number: JP-PFIZER INC-2017230697

PATIENT
  Age: 44 Year
  Sex: Male

DRUGS (1)
  1. JZOLOFT 25MG [Suspect]
     Active Substance: SERTRALINE HYDROCHLORIDE
     Dosage: UNK
     Dates: start: 201407, end: 201502

REACTIONS (1)
  - Drug-induced liver injury [Unknown]
